FAERS Safety Report 8514621-8 (Version None)
Quarter: 2012Q3

REPORT INFORMATION
  Report Type: 
  Country: None (occurrence: None)
  Receive Date: 20120717
  Receipt Date: 20120706
  Transmission Date: 20120928
  Serious: Yes (Other)
  Sender: FDA-Public Use
  Company Number: JP-VERTEX PHARMACEUTICALS INC.-AE-2012-007471

PATIENT
  Age: 66 Year
  Sex: Female

DRUGS (13)
  1. RIBAVIRIN [Concomitant]
     Route: 048
     Dates: start: 20120424, end: 20120507
  2. RIBAVIRIN [Concomitant]
     Route: 048
     Dates: start: 20120515, end: 20120604
  3. SELBEX [Concomitant]
     Route: 048
     Dates: start: 20120403
  4. RIBAVIRIN [Concomitant]
     Indication: HEPATITIS C
     Route: 048
     Dates: start: 20120403
  5. RIBAVIRIN [Concomitant]
     Route: 048
     Dates: start: 20120508, end: 20120514
  6. XYZAL [Concomitant]
     Route: 048
     Dates: end: 20120507
  7. RIBAVIRIN [Concomitant]
     Route: 048
     Dates: start: 20120417, end: 20120423
  8. RIBAVIRIN [Concomitant]
     Route: 048
     Dates: start: 20120605, end: 20120618
  9. RIBAVIRIN [Concomitant]
     Route: 048
     Dates: start: 20120619, end: 20120625
  10. PEGINTERFERON ALFA-2B [Concomitant]
     Indication: HEPATITIS C
     Route: 058
  11. RIBAVIRIN [Concomitant]
     Route: 048
     Dates: start: 20120626
  12. VIVIANT [Concomitant]
     Route: 048
     Dates: start: 20120403
  13. TELAVIC (TELAPREVIR) [Suspect]
     Indication: HEPATITIS C
     Route: 048
     Dates: start: 20120403, end: 20120625

REACTIONS (2)
  - ANAEMIA [None]
  - NEUTROPHIL COUNT DECREASED [None]
